FAERS Safety Report 7002638-4 (Version None)
Quarter: 2010Q3

REPORT INFORMATION
  Report Type: 
  Country: None (occurrence: None)
  Receive Date: 20100920
  Receipt Date: 20100908
  Transmission Date: 20110219
  Serious: Yes (Other)
  Sender: FDA-Public Use
  Company Number: US-PFIZER INC-2010113748

PATIENT
  Sex: Male
  Weight: 79.365 kg

DRUGS (1)
  1. VIAGRA [Suspect]
     Dosage: UNK
     Route: 048

REACTIONS (1)
  - CEREBROVASCULAR ACCIDENT [None]
